FAERS Safety Report 8861530 (Version 4)
Quarter: 2013Q2

REPORT INFORMATION
  Report Type: Spontaneous
  Country: US (occurrence: None)
  Receive Date: 20121022
  Receipt Date: 20130423
  Transmission Date: 20140414
  Serious: Yes (Hospitalization, Other)
  Sender: FDA-Public Use
  Company Number: JPI-P-007300

PATIENT
  Age: 55 Year
  Sex: Female

DRUGS (18)
  1. MONTELUKAST SODIUM [Concomitant]
  2. TOPIRAMATE [Concomitant]
  3. LORATADINE [Concomitant]
  4. CELECOXIB [Concomitant]
  5. VITAMIN D WITH CALCIUM [Concomitant]
  6. DOXYCYCLINE [Concomitant]
  7. OXYCODONE WITH ACETAMINOPHEN [Concomitant]
  8. FLUTICASONE PROPIONATE [Concomitant]
  9. ALBUTEROL SULFATE [Concomitant]
  10. AZELASTINE HYDROCHLORIDE [Concomitant]
  11. GABAPENTIN [Concomitant]
  12. BENEFIBER [Concomitant]
  13. XYREM (500 MILLIGRAM/ MILLILITERS, SOLUTION) (SODIUM OXYBATE) [Suspect]
     Indication: CATAPLEXY
     Dosage: 4.5 GM (2.25 GM, 2 IN 1 D), ORAL
     Route: 048
     Dates: start: 20040907
  14. XYREM (500 MILLIGRAM/ MILLILITERS, SOLUTION) (SODIUM OXYBATE) [Suspect]
     Indication: SLEEP APNOEA SYNDROME
     Dosage: 4.5 GM (2.25 GM, 2 IN 1 D), ORAL
     Route: 048
     Dates: start: 20040907
  15. XYREM (500 MILLIGRAM/ MILLILITERS, SOLUTION) (SODIUM OXYBATE) [Suspect]
     Dosage: 4.5 GM (2.25 GM, 2 IN 1 D), ORAL
     Route: 048
     Dates: start: 20040907
  16. ARMODAFINIL [Concomitant]
     Indication: SLEEP DISORDER
     Dates: start: 2012, end: 2012
  17. POLYETHYLENE GLYCOL [Concomitant]
  18. UNSPECIFIED PROBIOTIC [Concomitant]

REACTIONS (6)
  - Depression [None]
  - Memory impairment [None]
  - Osteomyelitis [None]
  - Cyst [None]
  - Foot operation [None]
  - Infective tenosynovitis [None]
